FAERS Safety Report 25586572 (Version 2)
Quarter: 2025Q3

REPORT INFORMATION
  Report Type: Report from Study
  Country: US (occurrence: US)
  Receive Date: 20250721
  Receipt Date: 20250818
  Transmission Date: 20251021
  Serious: No
  Sender: OTSUKA
  Company Number: US-MMM-Otsuka-HKBPNW9I

PATIENT
  Sex: Female

DRUGS (2)
  1. ARIPIPRAZOLE [Suspect]
     Active Substance: ARIPIPRAZOLE
     Indication: Schizophrenia
     Route: 065
     Dates: end: 20250613
  2. ARIPIPRAZOLE [Suspect]
     Active Substance: ARIPIPRAZOLE
     Route: 065
     Dates: start: 20250711

REACTIONS (2)
  - Drug ineffective [Unknown]
  - Off label use [Unknown]
